FAERS Safety Report 5766739-0 (Version None)
Quarter: 2008Q2

REPORT INFORMATION
  Report Type: 
  Country: None (occurrence: None)
  Receive Date: 20080612
  Receipt Date: 20080604
  Transmission Date: 20081010
  Serious: Yes (Hospitalization)
  Sender: FDA-Public Use
  Company Number: GB-ALLERGAN-0806176US

PATIENT
  Age: 21 Year
  Sex: Female

DRUGS (2)
  1. DYSPORT [Suspect]
     Indication: HYPERHIDROSIS
     Dosage: 250 UNITS, SINGLE
     Route: 058
     Dates: start: 20080417, end: 20080417
  2. DIANETTE [Concomitant]
     Indication: CONTRACEPTION
     Dates: start: 20071201

REACTIONS (2)
  - MUSCULAR WEAKNESS [None]
  - PAIN IN EXTREMITY [None]
